FAERS Safety Report 5137923-4 (Version None)
Quarter: 2006Q4

REPORT INFORMATION
  Report Type: 
  Country: None (occurrence: None)
  Receive Date: 20061030
  Receipt Date: 20060213
  Transmission Date: 20070319
  Serious: No
  Sender: FDA-Public Use
  Company Number: US-GLAXOSMITHKLINE-A0593448A

PATIENT
  Age: 62 Year
  Sex: Female

DRUGS (8)
  1. ADVAIR HFA [Suspect]
     Indication: EMPHYSEMA
     Dosage: 1PUFF TWICE PER DAY
     Route: 055
  2. SPIRIVA [Concomitant]
  3. ALBUTEROL [Concomitant]
  4. FOSAMAX [Concomitant]
  5. LEVOTHYROXINE SODIUM [Concomitant]
  6. NEURONTIN [Concomitant]
  7. VITAMIN TAB [Concomitant]
  8. CYCLOBENZAPRINE [Concomitant]

REACTIONS (2)
  - OVERDOSE [None]
  - PHARMACEUTICAL PRODUCT COMPLAINT [None]
